FAERS Safety Report 5012454-0 (Version None)
Quarter: 2006Q2

REPORT INFORMATION
  Report Type: 
  Country: None (occurrence: None)
  Receive Date: 20060414
  Receipt Date: 20060116
  Transmission Date: 20061013
  Serious: No
  Sender: FDA-Public Use
  Company Number: 2006SP000270

PATIENT
  Age: 62 Year
  Sex: Female
  Weight: 68.0396 kg

DRUGS (4)
  1. LUNESTA [Suspect]
     Indication: INSOMNIA
     Dosage: 2 MG;HS;ORAL
     Route: 048
     Dates: start: 20060113, end: 20060115
  2. ATENOLOL [Concomitant]
  3. NEURONTIN [Concomitant]
  4. UNSPECIFIED HEART MEDICATION [Concomitant]

REACTIONS (2)
  - PARADOXICAL DRUG REACTION [None]
  - RESTLESSNESS [None]
